FAERS Safety Report 4795723-9 (Version None)
Quarter: 2005Q4

REPORT INFORMATION
  Report Type: 
  Country: None (occurrence: None)
  Receive Date: 20051012
  Receipt Date: 20051003
  Transmission Date: 20060501
  Serious: Yes (Other)
  Sender: FDA-Public Use
  Company Number: US-BRISTOL-MYERS SQUIBB COMPANY-13130489

PATIENT
  Age: 55 Year
  Sex: Male

DRUGS (4)
  1. DIDANOSINE [Suspect]
  2. LOPINAVIR + RITONAVIR [Suspect]
  3. LAMIVUDINE [Suspect]
  4. ABACAVIR [Suspect]

REACTIONS (1)
  - HYPERLIPIDAEMIA [None]
